FAERS Safety Report 6197030-9 (Version None)
Quarter: 2009Q2

REPORT INFORMATION
  Report Type: 
  Country: None (occurrence: None)
  Receive Date: 20090520
  Receipt Date: 20090310
  Transmission Date: 20091009
  Serious: No
  Sender: FDA-Public Use
  Company Number: US-BAYER-200910328BCC

PATIENT
  Age: 31 Year
  Sex: Male

DRUGS (2)
  1. ALEVE [Suspect]
     Indication: HEADACHE
     Dosage: UNIT DOSE: 220 MG
     Route: 048
     Dates: start: 20090101
  2. NAPROXEN [Suspect]
     Indication: INJURY

REACTIONS (2)
  - HYPERSENSITIVITY [None]
  - PRURITUS GENERALISED [None]
